FAERS Safety Report 15208801 (Version 1)
Quarter: 2018Q3

REPORT INFORMATION
  Report Type: Report from Study
  Country: EG (occurrence: EG)
  Receive Date: 20180727
  Receipt Date: 20180727
  Transmission Date: 20181010
  Serious: Yes (Life-Threatening)
  Sender: FDA-Public Use
  Company Number: EG-SAKK-2018SA156259AA

PATIENT
  Age: 13 Year
  Sex: Female

DRUGS (3)
  1. CEFORAN [CEFADROXIL] [Concomitant]
     Dosage: 1 G
     Route: 042
  2. INSULIN GLARGINE [Suspect]
     Active Substance: INSULIN GLARGINE
     Indication: TYPE 1 DIABETES MELLITUS
     Dosage: 30 IU, QD
     Route: 058
     Dates: start: 20130517
  3. UNASYN IM/IV [Concomitant]
     Dosage: 1500 MG
     Route: 042

REACTIONS (4)
  - Coma [Recovered/Resolved]
  - Gastrointestinal infection [Recovered/Resolved]
  - Hyperchlorhydria [Recovered/Resolved]
  - Hyperglycaemia [Recovered/Resolved]

NARRATIVE: CASE EVENT DATE: 20180606
